FAERS Safety Report 10098480 (Version 2)
Quarter: 2014Q2

REPORT INFORMATION
  Report Type: Spontaneous
  Country: US (occurrence: US)
  Receive Date: 20140423
  Receipt Date: 20140509
  Transmission Date: 20141212
  Serious: No
  Sender: FDA-Public Use
  Company Number: US-PFIZER INC-2014110545

PATIENT
  Age: 73 Year
  Sex: Male

DRUGS (3)
  1. LIPITOR [Suspect]
     Indication: BLOOD CHOLESTEROL ABNORMAL
     Dosage: 20 MG, DAILY
  2. LIPITOR [Suspect]
     Dosage: 40 MG, UNK
  3. LIPITOR [Suspect]
     Dosage: 20 MG, UNK

REACTIONS (1)
  - Blood cholesterol decreased [Unknown]
